FAERS Safety Report 16724444 (Version 1)
Quarter: 2019Q3

REPORT INFORMATION
  Report Type: Spontaneous
  Country: GB (occurrence: GB)
  Receive Date: 20190821
  Receipt Date: 20190821
  Transmission Date: 20191005
  Serious: Yes (Disabling, Other)
  Sender: FDA-Public Use
  Company Number: GB-BAYER-2019-152997

PATIENT
  Age: 78 Year
  Sex: Female
  Weight: 73.02 kg

DRUGS (4)
  1. NAPROXEN. [Concomitant]
     Active Substance: NAPROXEN
     Dosage: UNK
  2. CIPROXIN [Suspect]
     Active Substance: CIPROFLOXACIN
     Indication: CYSTITIS
     Dosage: 1000 MG, QD
     Route: 048
     Dates: start: 20190408, end: 20190415
  3. CANDESARTAN CILEXETIL. [Concomitant]
     Active Substance: CANDESARTAN CILEXETIL
     Dosage: UNK
  4. ATORVASTATIN CALCIUM TRIHYDRATE [Concomitant]
     Active Substance: ATORVASTATIN CALCIUM
     Dosage: UNK

REACTIONS (7)
  - Burning sensation [Unknown]
  - Musculoskeletal pain [Unknown]
  - Arthralgia [Not Recovered/Not Resolved]
  - Paraesthesia [Unknown]
  - Tendon pain [Not Recovered/Not Resolved]
  - Inflammation [Unknown]
  - Pain in extremity [Unknown]

NARRATIVE: CASE EVENT DATE: 20190422
